FAERS Safety Report 13102602 (Version 1)
Quarter: 2017Q1

REPORT INFORMATION
  Report Type: Report from Study
  Country: US (occurrence: US)
  Receive Date: 20170110
  Receipt Date: 20170110
  Transmission Date: 20170428
  Serious: Yes (Death, Hospitalization, Other)
  Sender: FDA-Public Use
  Company Number: US-BRISTOL-MYERS SQUIBB COMPANY-BMS-2016-091060

PATIENT
  Sex: Male

DRUGS (2)
  1. NIVOLUMAB [Suspect]
     Active Substance: NIVOLUMAB
     Indication: PRODUCT USED FOR UNKNOWN INDICATION
     Dosage: UNK, Q2WK
     Route: 042
     Dates: start: 20160719, end: 20160719
  2. NIVOLUMAB [Suspect]
     Active Substance: NIVOLUMAB
     Indication: LUNG NEOPLASM MALIGNANT
     Dosage: UNK, Q2WK
     Route: 042
     Dates: start: 20160413, end: 20160413

REACTIONS (12)
  - Nausea [Recovering/Resolving]
  - Hypotension [Unknown]
  - Weight decreased [Unknown]
  - Pain [Recovered/Resolved]
  - Death [Fatal]
  - Vomiting [Unknown]
  - Adverse event [Unknown]
  - Hyponatraemia [Unknown]
  - Pneumonia [Unknown]
  - Asthenia [Unknown]
  - Malignant neoplasm progression [Unknown]
  - Hypothyroidism [Unknown]
